FAERS Safety Report 23042685 (Version 2)
Quarter: 2023Q4

REPORT INFORMATION
  Report Type: Report from Study
  Country: CO (occurrence: CO)
  Receive Date: 20231009
  Receipt Date: 20231213
  Transmission Date: 20240110
  Serious: Yes (Hospitalization)
  Sender: FDA-Public Use
  Company Number: CO-002147023-NVSC2023CO215275

PATIENT
  Sex: Male

DRUGS (1)
  1. ELTROMBOPAG OLAMINE [Suspect]
     Active Substance: ELTROMBOPAG OLAMINE
     Indication: Immune thrombocytopenia
     Dosage: UNK
     Route: 048

REACTIONS (3)
  - Aplastic anaemia [Unknown]
  - Hyperplasia [Unknown]
  - Platelet count decreased [Unknown]
